FAERS Safety Report 24423491 (Version 1)
Quarter: 2024Q4

REPORT INFORMATION
  Report Type: Spontaneous
  Country: GB (occurrence: GB)
  Receive Date: 20241010
  Receipt Date: 20241010
  Transmission Date: 20250114
  Serious: Yes (Disabling)
  Sender: MYLAN
  Company Number: None

PATIENT
  Age: 40 Year
  Sex: Female
  Weight: 65 kg

DRUGS (1)
  1. CITALOPRAM [Suspect]
     Active Substance: CITALOPRAM
     Indication: Anxiety
     Dosage: 20 MILLIGRAM, QD (MORNING)
     Route: 065
     Dates: start: 20240917

REACTIONS (1)
  - Heat stroke [Recovering/Resolving]

NARRATIVE: CASE EVENT DATE: 20241006
